FAERS Safety Report 11110241 (Version 1)
Quarter: 2015Q2

REPORT INFORMATION
  Report Type: Spontaneous
  Country: US (occurrence: None)
  Receive Date: 20150512
  Receipt Date: 20150512
  Transmission Date: 20150821
  Serious: Yes (Life-Threatening, Hospitalization, Disabling, Other)
  Sender: FDA-Public Use
  Company Number: None

PATIENT
  Age: 100 Year
  Sex: Female
  Weight: 36.15 kg

DRUGS (9)
  1. METOPROLOL [Concomitant]
     Active Substance: METOPROLOL
  2. VITAMIN B12 [Concomitant]
     Active Substance: CYANOCOBALAMIN
  3. ASPIRIN. [Concomitant]
     Active Substance: ASPIRIN
  4. FUROSEMIDE. [Concomitant]
     Active Substance: FUROSEMIDE
  5. NORCO [Suspect]
     Active Substance: ACETAMINOPHEN\HYDROCODONE BITARTRATE
     Indication: PAIN
     Dosage: 1 PILL
     Route: 048
     Dates: start: 20150423, end: 20150423
  6. VITRON-C [Concomitant]
  7. DIGOXIN. [Concomitant]
     Active Substance: DIGOXIN
  8. POTASSIUM [Concomitant]
     Active Substance: POTASSIUM
  9. D3 [Concomitant]
     Active Substance: 25-HYDROXYCHOLECALCIFEROL, 5-TRANS-

REACTIONS (4)
  - Drug effect increased [None]
  - Atrial fibrillation [None]
  - Syncope [None]
  - Overdose [None]

NARRATIVE: CASE EVENT DATE: 20150423
